FAERS Safety Report 4497021-X (Version None)
Quarter: 2004Q3

REPORT INFORMATION
  Report Type: 
  Country: None (occurrence: None)
  Receive Date: 20040928
  Receipt Date: 20040728
  Transmission Date: 20050211
  Serious: No
  Sender: FDA-Public Use
  Company Number: 04P-163-0268252-00

PATIENT
  Age: 60 Year
  Sex: Male

DRUGS (4)
  1. HUMIRA [Suspect]
     Indication: RHEUMATOID ARTHRITIS
     Dosage: 40 MG, 1 IN 2 WK, SUBCUTANEOUS
     Route: 058
     Dates: start: 20031201, end: 20040708
  2. PREDNISONE [Concomitant]
  3. SERETIDE MITE [Concomitant]
  4. COMBIVENT [Concomitant]

REACTIONS (3)
  - HAEMOPTYSIS [None]
  - HEADACHE [None]
  - NAUSEA [None]
